FAERS Safety Report 9706687 (Version 1)
Quarter: 2013Q4

REPORT INFORMATION
  Report Type: Spontaneous
  Country: IT (occurrence: IT)
  Receive Date: 20131125
  Receipt Date: 20131125
  Transmission Date: 20140711
  Serious: Yes (Other)
  Sender: FDA-Public Use
  Company Number: PHHY2013IT131095

PATIENT
  Sex: 0

DRUGS (2)
  1. IRINOTECAN [Suspect]
     Indication: ADENOCARCINOMA OF COLON
     Dosage: 140 MG, CYCLIC
     Route: 042
     Dates: start: 20130627, end: 20130711
  2. ERBITUX [Concomitant]
     Indication: ADENOCARCINOMA OF COLON
     Dates: start: 20130219, end: 20130822

REACTIONS (3)
  - Myalgia [Recovered/Resolved]
  - Anaemia [Recovered/Resolved]
  - Neutropenia [Recovered/Resolved]
